FAERS Safety Report 7212220-1 (Version None)
Quarter: 2010Q4

REPORT INFORMATION
  Report Type: 
  Country: None (occurrence: None)
  Receive Date: 20101227
  Receipt Date: 20101214
  Transmission Date: 20110411
  Serious: Yes (Other)
  Sender: FDA-Public Use
  Company Number: 1000017523

PATIENT
  Age: 46 Year
  Sex: Female

DRUGS (4)
  1. PROPRANOLOL HYDROCHLORIDE [Suspect]
     Indication: HYPERTHYROIDISM
  2. PEGYLATED INTERFERON ALPHA-2B (PEGYLATED INTERFERON ALPHA-2B) (100 MIC [Suspect]
     Indication: HEPATITIS C
     Dosage: 1 IN 1 WK
  3. RIBAVARIN [Suspect]
     Indication: HEPATITIS C
     Dosage: 800 MG
  4. IRBESARTAN [Concomitant]

REACTIONS (6)
  - ASTHENIA [None]
  - HYPERTHYROIDISM [None]
  - IDIOPATHIC THROMBOCYTOPENIC PURPURA [None]
  - SALIVARY HYPERSECRETION [None]
  - TREMOR [None]
  - WEIGHT DECREASED [None]
